FAERS Safety Report 8481686-1 (Version None)
Quarter: 2012Q3

REPORT INFORMATION
  Report Type: 
  Country: None (occurrence: None)
  Receive Date: 20120702
  Receipt Date: 20120620
  Transmission Date: 20120928
  Serious: Yes (Other)
  Sender: FDA-Public Use
  Company Number: JP-VERTEX PHARMACEUTICALS INC.-AE-2012-007911

PATIENT
  Age: 45 Year
  Sex: Female

DRUGS (10)
  1. TELAVIC (TELAPREVIR) [Suspect]
     Indication: HEPATITIS C
     Route: 048
     Dates: start: 20120322, end: 20120607
  2. URSO 250 [Concomitant]
     Route: 048
  3. PYDOXAL [Concomitant]
     Route: 048
     Dates: start: 20120322
  4. RIBAVIRIN [Concomitant]
     Indication: HEPATITIS C
     Route: 048
     Dates: start: 20120322, end: 20120607
  5. PEG-INTRON [Concomitant]
     Route: 058
     Dates: start: 20120418, end: 20120606
  6. PEG-INTRON [Concomitant]
     Indication: HEPATITIS C
     Route: 058
     Dates: start: 20120322, end: 20120411
  7. VOLTAREN [Concomitant]
     Route: 054
     Dates: start: 20120328
  8. HIRUDOID [Concomitant]
     Route: 061
     Dates: start: 20120328
  9. LEVOTHYROXINE SODIUM [Concomitant]
     Route: 048
     Dates: start: 20120607, end: 20120609
  10. VOLTAREN [Concomitant]
     Route: 054
     Dates: start: 20120606, end: 20120606

REACTIONS (2)
  - WHITE BLOOD CELL COUNT DECREASED [None]
  - HAEMOGLOBIN DECREASED [None]
